FAERS Safety Report 6621674-0 (Version None)
Quarter: 2010Q1

REPORT INFORMATION
  Report Type: 
  Country: None (occurrence: None)
  Receive Date: 20100309
  Receipt Date: 20091110
  Transmission Date: 20100710
  Serious: Yes (Other)
  Sender: FDA-Public Use
  Company Number: US-GENENTECH-294033

PATIENT
  Sex: Female
  Weight: 68.2 kg

DRUGS (10)
  1. XOLAIR [Suspect]
     Indication: ASTHMA
     Dosage: 300 MG, 1/MONTH
     Route: 058
     Dates: start: 20090706
  2. ALBUTEROL [Concomitant]
     Indication: DRUG USE FOR UNKNOWN INDICATION
  3. CLARITIN [Concomitant]
     Indication: DRUG USE FOR UNKNOWN INDICATION
  4. DUONEB [Concomitant]
     Indication: DRUG USE FOR UNKNOWN INDICATION
  5. FORADIL [Concomitant]
     Indication: DRUG USE FOR UNKNOWN INDICATION
  6. PROVENTIL [Concomitant]
     Indication: DRUG USE FOR UNKNOWN INDICATION
  7. SINGULAIR [Concomitant]
     Indication: DRUG USE FOR UNKNOWN INDICATION
  8. SPIRIVA [Concomitant]
     Indication: DRUG USE FOR UNKNOWN INDICATION
  9. PROTONIX [Concomitant]
     Indication: DRUG USE FOR UNKNOWN INDICATION
  10. SYNTHROID [Concomitant]
     Indication: DRUG USE FOR UNKNOWN INDICATION

REACTIONS (4)
  - CHEST PAIN [None]
  - DYSPNOEA [None]
  - OROPHARYNGEAL PAIN [None]
  - RASH [None]
